FAERS Safety Report 25729604 (Version 1)
Quarter: 2025Q3

REPORT INFORMATION
  Report Type: Report from Study
  Country: US (occurrence: US)
  Receive Date: 20250827
  Receipt Date: 20250827
  Transmission Date: 20251020
  Serious: Yes (Other)
  Sender: ABBVIE
  Company Number: US-ABBVIE-6430426

PATIENT
  Age: 64 Year
  Sex: Female

DRUGS (1)
  1. SKYRIZI [Suspect]
     Active Substance: RISANKIZUMAB-RZAA
     Indication: Psoriatic arthropathy
     Route: 058
     Dates: start: 20250305

REACTIONS (6)
  - Knee operation [Not Recovered/Not Resolved]
  - Ankle operation [Not Recovered/Not Resolved]
  - Surgical failure [Unknown]
  - Gait inability [Unknown]
  - Procedural pain [Not Recovered/Not Resolved]
  - Periarthritis [Not Recovered/Not Resolved]

NARRATIVE: CASE EVENT DATE: 20250101
